FAERS Safety Report 22623930 (Version 1)
Quarter: 2023Q2

REPORT INFORMATION
  Report Type: Spontaneous
  Country: BR (occurrence: BR)
  Receive Date: 20230621
  Receipt Date: 20230621
  Transmission Date: 20230721
  Serious: Yes (Other)
  Sender: FDA-Public Use
  Company Number: BR-TAKEDA-2023TUS059387

PATIENT

DRUGS (1)
  1. LISDEXAMFETAMINE DIMESYLATE [Suspect]
     Active Substance: LISDEXAMFETAMINE DIMESYLATE
     Indication: Attention deficit hyperactivity disorder
     Dosage: UNK
     Route: 065

REACTIONS (13)
  - Mental impairment [Unknown]
  - Sleep disorder [Unknown]
  - Rebound effect [Unknown]
  - Feeling abnormal [Unknown]
  - Hunger [Unknown]
  - Asthenia [Unknown]
  - Eating disorder [Unknown]
  - Fear [Unknown]
  - Impatience [Unknown]
  - Disturbance in attention [Unknown]
  - Discomfort [Unknown]
  - Fatigue [Unknown]
  - Headache [Unknown]
